FAERS Safety Report 17996062 (Version 3)
Quarter: 2020Q3

REPORT INFORMATION
  Report Type: Spontaneous
  Country: US (occurrence: US)
  Receive Date: 20200708
  Receipt Date: 20200806
  Transmission Date: 20201103
  Serious: Yes (Death, Other)
  Sender: FDA-Public Use
  Company Number: US-GILEAD-2020-0480084

PATIENT
  Age: 63 Year
  Sex: Male
  Weight: 84 kg

DRUGS (23)
  1. PLASMA [Concomitant]
     Active Substance: HUMAN PLASMA
     Dosage: UNK
     Dates: start: 20200702
  2. ASPIRIN (E.C.) [Concomitant]
     Active Substance: ASPIRIN
     Dosage: 81 MG TUBE
     Dates: start: 20200701, end: 20200705
  3. FAMOTIDINE. [Concomitant]
     Active Substance: FAMOTIDINE
     Dosage: 20 MG
     Route: 042
     Dates: start: 20200701, end: 20200705
  4. DEXAMETHASONE. [Concomitant]
     Active Substance: DEXAMETHASONE
     Dosage: 6 MG TUBE
     Dates: start: 20200630, end: 20200705
  5. AMLODIPINE [Concomitant]
     Active Substance: AMLODIPINE BESYLATE
     Dosage: 5 MG TUBE
     Dates: start: 20200704, end: 20200705
  6. VERSED [Concomitant]
     Active Substance: MIDAZOLAM HYDROCHLORIDE
     Dosage: UNK
     Route: 041
     Dates: start: 20200629, end: 20200705
  7. LANTUS [Concomitant]
     Active Substance: INSULIN GLARGINE
     Dosage: 10 UNIT
     Route: 058
     Dates: start: 20200704, end: 20200705
  8. REMDESIVIR. [Suspect]
     Active Substance: REMDESIVIR
     Dosage: 100 MG, QD
     Route: 042
     Dates: start: 20200702, end: 20200704
  9. NICARDIPINE [Concomitant]
     Active Substance: NICARDIPINE
     Dosage: UNK
     Route: 041
     Dates: start: 20200629, end: 20200705
  10. ATORVASTATIN [Concomitant]
     Active Substance: ATORVASTATIN
     Dosage: 40 MG TUBE
     Dates: start: 20200701, end: 20200705
  11. DOCUSATE [Concomitant]
     Active Substance: DOCUSATE
     Dosage: 100 MG TUBE
     Dates: start: 20200629, end: 20200705
  12. REMDESIVIR. [Suspect]
     Active Substance: REMDESIVIR
     Indication: COVID-19
     Dosage: 200 MG, ONCE
     Route: 042
     Dates: start: 20200701, end: 20200701
  13. HEPARIN [Concomitant]
     Active Substance: HEPARIN SODIUM
     Dosage: 5000UNIT
     Route: 058
     Dates: start: 20200629, end: 20200705
  14. ROCURONIUM [Concomitant]
     Active Substance: ROCURONIUM BROMIDE
     Dosage: UNK
     Route: 041
     Dates: start: 20200629, end: 20200705
  15. CHOLECALCIFEROL [Concomitant]
     Active Substance: CHOLECALCIFEROL
     Dosage: 5000 UNIT TUBE
     Dates: start: 20200629, end: 20200705
  16. CLOPIDOGREL [Concomitant]
     Active Substance: CLOPIDOGREL BISULFATE
     Dosage: 75 MG TUBE
     Dates: start: 20200702, end: 20200705
  17. VANCOMYCIN [VANCOMYCIN HYDROCHLORIDE] [Concomitant]
     Active Substance: VANCOMYCIN HYDROCHLORIDE
     Dosage: UNK
     Route: 042
     Dates: start: 20200702, end: 20200705
  18. HUMALOG [Concomitant]
     Active Substance: INSULIN LISPRO
     Dosage: SCALE
     Route: 058
     Dates: start: 20200630, end: 20200705
  19. NOREPINEPHRINE. [Concomitant]
     Active Substance: NOREPINEPHRINE
     Dosage: UNK
     Route: 041
     Dates: start: 20200629, end: 20200705
  20. ASCORBIC ACID. [Concomitant]
     Active Substance: ASCORBIC ACID
     Dosage: 500 MG TUBE
     Dates: start: 20200629, end: 20200705
  21. ZINC. [Concomitant]
     Active Substance: ZINC
     Dosage: 220 MG TUBE
     Dates: start: 20200629, end: 20200705
  22. CEFEPIME [Concomitant]
     Active Substance: CEFEPIME HYDROCHLORIDE
     Dosage: 2 G
     Route: 042
     Dates: start: 20200702, end: 20200705
  23. FENTANYL. [Concomitant]
     Active Substance: FENTANYL
     Dosage: UNK
     Route: 041
     Dates: start: 20200629, end: 20200705

REACTIONS (3)
  - Cerebrovascular accident [Not Recovered/Not Resolved]
  - Oedema [Not Recovered/Not Resolved]
  - Brain death [Fatal]

NARRATIVE: CASE EVENT DATE: 20200705
